FAERS Safety Report 13960339 (Version 3)
Quarter: 2017Q4

REPORT INFORMATION
  Report Type: Report from Study
  Country: None (occurrence: AR)
  Receive Date: 20170912
  Receipt Date: 20171006
  Transmission Date: 20180320
  Serious: Yes (Hospitalization, Other)
  Sender: FDA-Public Use
  Company Number: AR-ABBVIE-17K-007-2098577-00

PATIENT
  Age: 36 Year
  Sex: Male

DRUGS (2)
  1. HUMIRA [Suspect]
     Active Substance: ADALIMUMAB
     Indication: HIDRADENITIS
     Route: 058
     Dates: start: 201702, end: 2017
  2. HUMIRA [Suspect]
     Active Substance: ADALIMUMAB
     Route: 058
     Dates: start: 2017

REACTIONS (9)
  - Abdominal mass [Unknown]
  - Granulomatous liver disease [Unknown]
  - Peritoneal tuberculosis [Unknown]
  - Night sweats [Unknown]
  - Ascites [Unknown]
  - Lung disorder [Unknown]
  - Pyrexia [Unknown]
  - Retroperitoneal lymphadenopathy [Unknown]
  - Epstein-Barr virus test positive [Unknown]

NARRATIVE: CASE EVENT DATE: 2017
